FAERS Safety Report 14501853 (Version 1)
Quarter: 2018Q1

REPORT INFORMATION
  Report Type: Report from Study
  Country: None (occurrence: AU)
  Receive Date: 20180207
  Receipt Date: 20180207
  Transmission Date: 20180509
  Serious: Yes (Hospitalization, Other)
  Sender: FDA-Public Use
  Company Number: AU-ABBVIE-17S-008-2161421-00

PATIENT
  Age: 61 Year
  Sex: Male

DRUGS (1)
  1. LUCRIN DEPOT [Suspect]
     Active Substance: LEUPROLIDE ACETATE
     Indication: PROSTATE CANCER
     Route: 030
     Dates: start: 201708

REACTIONS (7)
  - Prostate cancer [Unknown]
  - Neutrophil count decreased [Recovered/Resolved]
  - Prostate cancer metastatic [Unknown]
  - Prostatic specific antigen increased [Unknown]
  - Hot flush [Not Recovered/Not Resolved]
  - Feeling abnormal [Recovered/Resolved]
  - Infection [Recovered/Resolved]

NARRATIVE: CASE EVENT DATE: 201710
